FAERS Safety Report 7397690 (Version 13)
Quarter: 2015Q4

REPORT INFORMATION
  Report Type: Report from Study
  Country: JP (occurrence: JP)
  Receive Date: 20100524
  Receipt Date: 20151105
  Transmission Date: 20160305
  Serious: Yes (Hospitalization, Other)
  Sender: FDA-Public Use
  Company Number: PHHO2010JP07419

PATIENT
  Age: 72 Year
  Sex: Male
  Weight: 56 kg

DRUGS (22)
  1. COMPARATOR ENALAPRIL [Suspect]
     Active Substance: ENALAPRIL
     Dosage: 20 MG
     Route: 048
     Dates: start: 20100216, end: 20100322
  2. AMARYL [Concomitant]
     Active Substance: GLIMEPIRIDE
     Indication: DIABETES MELLITUS
     Dosage: 1 MG, QD
     Route: 048
     Dates: start: 20091217
  3. WARFARIN POTASSIUM [Concomitant]
     Active Substance: WARFARIN POTASSIUM
     Dosage: 0.5 MG, QD
     Route: 048
     Dates: start: 20100514, end: 20100520
  4. GLORIAMIN [Concomitant]
     Indication: GASTRITIS PROPHYLAXIS
     Dosage: 0.5 MG, TID
     Route: 048
     Dates: start: 20091217
  5. ALISKIREN [Suspect]
     Active Substance: ALISKIREN
     Indication: CARDIAC FAILURE CHRONIC
     Dosage: UNK
     Route: 048
     Dates: start: 20100323, end: 20100513
  6. ALISKIREN [Suspect]
     Active Substance: ALISKIREN
     Dosage: UNK
     Route: 048
     Dates: start: 20100608
  7. WARFARIN POTASSIUM [Concomitant]
     Active Substance: WARFARIN POTASSIUM
     Dosage: 2 MG, QD
     Route: 048
     Dates: start: 20100623
  8. COMPARATOR ENALAPRIL [Suspect]
     Active Substance: ENALAPRIL
     Dosage: UNK
     Route: 048
     Dates: start: 20100608
  9. BAYASPIRIN [Concomitant]
     Active Substance: ASPIRIN
     Indication: CEREBRAL INFARCTION
     Dosage: 100 MG, QD
     Route: 048
     Dates: start: 20061217, end: 20100506
  10. ALISKIREN [Suspect]
     Active Substance: ALISKIREN
     Indication: CARDIAC FAILURE
     Dosage: 150 MG, QD
     Route: 048
     Dates: start: 20100302, end: 20100322
  11. ALISKIREN [Suspect]
     Active Substance: ALISKIREN
     Indication: CARDIAC FAILURE
     Dosage: 150 MG
     Route: 048
     Dates: start: 20100302, end: 20100322
  12. WARFARIN POTASSIUM [Concomitant]
     Active Substance: WARFARIN POTASSIUM
     Indication: ATRIAL FIBRILLATION
     Dosage: 1.5 MG, QD
     Route: 048
     Dates: start: 20100501, end: 20100506
  13. ALISKIREN [Suspect]
     Active Substance: ALISKIREN
     Dosage: UNK UNK, NO TREATMENT
     Route: 048
     Dates: start: 20100514, end: 20100607
  14. COMPARATOR ENALAPRIL [Suspect]
     Active Substance: ENALAPRIL
     Indication: CARDIAC FAILURE
     Dosage: 10 MG,
     Route: 048
     Dates: start: 20100210, end: 20100215
  15. ARTIST [Concomitant]
     Active Substance: CARVEDILOL
     Indication: CARDIAC FAILURE CHRONIC
     Dosage: 1.25 MG, BID
     Route: 048
     Dates: start: 20091217
  16. WARFARIN POTASSIUM [Concomitant]
     Active Substance: WARFARIN POTASSIUM
     Dosage: UNK
     Route: 048
     Dates: start: 20100521, end: 20100603
  17. WARFARIN POTASSIUM [Concomitant]
     Active Substance: WARFARIN POTASSIUM
     Dosage: 2 MG, QD
     Route: 048
     Dates: start: 20101215, end: 20110330
  18. RENIVACE [Concomitant]
     Active Substance: ENALAPRIL
     Dosage: 5 MG, BID
     Route: 048
     Dates: start: 20100521, end: 20100608
  19. ANCARON [Concomitant]
     Active Substance: AMIODARONE HYDROCHLORIDE
     Indication: VENTRICULAR EXTRASYSTOLES
     Dosage: 100 MG, BID
     Route: 048
     Dates: start: 20091221
  20. RENIVACE [Concomitant]
     Active Substance: ENALAPRIL
     Indication: HYPERTENSION
     Dosage: 10 MG, BID
     Route: 048
     Dates: start: 20100514, end: 20100520
  21. ALOSITOL [Concomitant]
     Active Substance: ALLOPURINOL
     Indication: HYPERURICAEMIA
     Dosage: 100 MG, BID
     Route: 048
     Dates: start: 20091217, end: 20110120
  22. WARFARIN POTASSIUM [Concomitant]
     Active Substance: WARFARIN POTASSIUM
     Dosage: 1.5 MG, QD
     Route: 048
     Dates: start: 20100604, end: 20100608

REACTIONS (18)
  - Malaise [Recovering/Resolving]
  - Pericarditis [Recovering/Resolving]
  - Nausea [Recovering/Resolving]
  - Vomiting [Recovering/Resolving]
  - Atrioventricular block [Unknown]
  - Decreased appetite [Recovering/Resolving]
  - Pleural effusion [Recovering/Resolving]
  - Oesophageal ulcer [Recovered/Resolved]
  - Oedema [Recovering/Resolving]
  - Sinus node dysfunction [Recovering/Resolving]
  - Atrioventricular block second degree [Not Recovered/Not Resolved]
  - Chronic kidney disease [Unknown]
  - Bradycardia [Recovering/Resolving]
  - Face oedema [Recovered/Resolved]
  - Oedema peripheral [Recovered/Resolved]
  - Gastric neoplasm [Not Recovered/Not Resolved]
  - Cardiac failure chronic [Unknown]
  - Weight increased [Recovered/Resolved]

NARRATIVE: CASE EVENT DATE: 20100419
